FAERS Safety Report 6781439-6 (Version None)
Quarter: 2010Q2

REPORT INFORMATION
  Report Type: 
  Country: None (occurrence: None)
  Receive Date: 20100621
  Receipt Date: 20100611
  Transmission Date: 20101027
  Serious: Yes (Death, Life-Threatening, Hospitalization, Disabling, Other)
  Sender: FDA-Public Use
  Company Number: JP-ROCHE-694482

PATIENT
  Sex: Female

DRUGS (10)
  1. AVASTIN [Suspect]
     Indication: COLON CANCER RECURRENT
     Route: 041
     Dates: start: 20090121, end: 20090730
  2. ELPLAT [Concomitant]
     Route: 041
     Dates: start: 20090107, end: 20090507
  3. FLUOROURACIL [Concomitant]
     Route: 040
     Dates: start: 20090107, end: 20090501
  4. FLUOROURACIL [Concomitant]
     Route: 041
     Dates: start: 20090107, end: 20090501
  5. FLUOROURACIL [Concomitant]
     Route: 041
     Dates: start: 20090501, end: 20090730
  6. FLUOROURACIL [Concomitant]
     Route: 041
     Dates: start: 20090501, end: 20090730
  7. LEUCOVORIN CALCIUM [Concomitant]
     Route: 041
     Dates: start: 20090121, end: 20090501
  8. LEUCOVORIN CALCIUM [Concomitant]
     Route: 041
     Dates: start: 20090501, end: 20090730
  9. VOLTAREN [Concomitant]
     Route: 048
     Dates: start: 20090727
  10. DUROTEP [Concomitant]
     Dosage: FORM: TAPE
     Route: 062
     Dates: start: 20090809

REACTIONS (11)
  - CIRCULATORY COLLAPSE [None]
  - DISSEMINATED INTRAVASCULAR COAGULATION [None]
  - DISUSE SYNDROME [None]
  - DUODENAL PERFORATION [None]
  - HEPATIC FAILURE [None]
  - ILEAL PERFORATION [None]
  - IMPAIRED HEALING [None]
  - INTESTINAL OBSTRUCTION [None]
  - NEUROPATHY PERIPHERAL [None]
  - PERITONITIS [None]
  - SEPTIC SHOCK [None]
